FAERS Safety Report 12555119 (Version 1)
Quarter: 2016Q3

REPORT INFORMATION
  Report Type: Report from Study
  Country: DE (occurrence: DE)
  Receive Date: 20160714
  Receipt Date: 20160714
  Transmission Date: 20161109
  Serious: Yes (Hospitalization, Other)
  Sender: FDA-Public Use
  Company Number: DE-ROCHE-1787648

PATIENT
  Age: 49 Year
  Sex: Female
  Weight: 50 kg

DRUGS (33)
  1. LYRICA [Concomitant]
     Active Substance: PREGABALIN
     Indication: PAIN IN EXTREMITY
  2. RINGER SOLUTION [Concomitant]
     Indication: DIARRHOEA
     Route: 042
     Dates: start: 20160111, end: 20160113
  3. LOPERAMID [Concomitant]
     Active Substance: LOPERAMIDE
     Route: 048
     Dates: start: 20160112, end: 20160112
  4. IBUPROFEN. [Concomitant]
     Active Substance: IBUPROFEN
     Route: 048
     Dates: start: 20160627
  5. PANTOZOL [Concomitant]
     Active Substance: PANTOPRAZOLE SODIUM
     Indication: ARTHRALGIA
     Route: 048
     Dates: start: 20160602
  6. DEXAMETHASON [Concomitant]
     Active Substance: DEXAMETHASONE
     Dosage: 1-0.5-0
     Route: 048
     Dates: start: 20160627
  7. PALLADON [Concomitant]
     Active Substance: HYDROMORPHONE
     Indication: PAIN IN EXTREMITY
  8. BEVACIZUMAB [Suspect]
     Active Substance: BEVACIZUMAB
     Dosage: LAST DOSE PRIOR TO DYSPNEA
     Route: 042
     Dates: start: 20160531
  9. BUSCOPAN [Concomitant]
     Active Substance: BUTYLSCOPOLAMINE BROMIDE
     Indication: DIARRHOEA
     Route: 042
     Dates: start: 20160111, end: 20160112
  10. PALLADON [Concomitant]
     Active Substance: HYDROMORPHONE
     Indication: ARTHRALGIA
     Route: 048
     Dates: start: 20160623
  11. LYRICA [Concomitant]
     Active Substance: PREGABALIN
     Indication: ARTHRALGIA
     Route: 048
     Dates: start: 20160623
  12. LOPERAMID [Concomitant]
     Active Substance: LOPERAMIDE
     Route: 048
     Dates: start: 20160113, end: 20160114
  13. PARACETAMOL [Concomitant]
     Active Substance: ACETAMINOPHEN
     Indication: DIARRHOEA
     Route: 042
     Dates: start: 20160111, end: 20160111
  14. OMEPRAZOL [Concomitant]
     Active Substance: OMEPRAZOLE
     Indication: DYSPHONIA
     Route: 048
     Dates: start: 20160211, end: 20160325
  15. IBUPROFEN. [Concomitant]
     Active Substance: IBUPROFEN
     Indication: ARTHRALGIA
     Dosage: 4 TIMES
     Route: 048
     Dates: start: 20160602, end: 20160626
  16. NOVAMINSULFON [Concomitant]
     Active Substance: METAMIZOLE
     Indication: ARTHRALGIA
     Route: 048
     Dates: start: 20160427, end: 20160524
  17. PANTOZOL [Concomitant]
     Active Substance: PANTOPRAZOLE SODIUM
     Indication: PAIN IN EXTREMITY
  18. BEVACIZUMAB [Suspect]
     Active Substance: BEVACIZUMAB
     Indication: BREAST CANCER
     Route: 042
     Dates: start: 20151223
  19. CAPECITABINE. [Suspect]
     Active Substance: CAPECITABINE
     Dosage: MOST RECENT DOSE OF CAPECITABINE PRIOR TO SAE: FEAR OF GRAND MAL SEIZURE AND DYSPNEA
     Route: 048
     Dates: start: 20160303
  20. STEROFUNDIN [Concomitant]
     Indication: DIARRHOEA
     Route: 042
     Dates: start: 20160111, end: 20160111
  21. STEROFUNDIN [Concomitant]
     Route: 042
     Dates: start: 20160113, end: 20160113
  22. CLEXANE [Concomitant]
     Active Substance: ENOXAPARIN SODIUM
     Indication: THROMBOSIS PROPHYLAXIS
     Route: 058
     Dates: start: 20151214, end: 20151226
  23. LOPERAMID [Concomitant]
     Active Substance: LOPERAMIDE
     Indication: DIARRHOEA
     Route: 048
     Dates: start: 20160111, end: 20160111
  24. IBUFLAM (GERMANY) [Concomitant]
     Indication: ARTHRALGIA
     Route: 048
     Dates: start: 20160427, end: 20160524
  25. IBUPROFEN. [Concomitant]
     Active Substance: IBUPROFEN
     Indication: PAIN IN EXTREMITY
     Route: 048
     Dates: start: 20160602
  26. CLEXANE [Concomitant]
     Active Substance: ENOXAPARIN SODIUM
     Dosage: 0.4 ML
     Route: 058
     Dates: start: 20160602, end: 20160623
  27. IBUFLAM (GERMANY) [Concomitant]
     Indication: PAIN IN EXTREMITY
  28. DEXAMETHASON [Concomitant]
     Active Substance: DEXAMETHASONE
     Dosage: 1-0.5-0
     Route: 048
     Dates: start: 20160624, end: 20160626
  29. CAPECITABINE. [Suspect]
     Active Substance: CAPECITABINE
     Indication: BREAST CANCER
     Route: 048
     Dates: start: 20150122, end: 20160224
  30. STEROFUNDIN [Concomitant]
     Route: 042
     Dates: start: 20160112, end: 20160112
  31. STEROFUNDIN [Concomitant]
     Route: 042
     Dates: start: 20160114, end: 20160114
  32. NOVAMINSULFON [Concomitant]
     Active Substance: METAMIZOLE
     Indication: PAIN IN EXTREMITY
     Route: 048
     Dates: start: 20160602, end: 20160602
  33. DEXAMETHASON [Concomitant]
     Active Substance: DEXAMETHASONE
     Indication: PROPHYLAXIS
     Dosage: 1-1/2-0
     Route: 048
     Dates: start: 20160602, end: 20160623

REACTIONS (3)
  - Dyspnoea [Not Recovered/Not Resolved]
  - Generalised tonic-clonic seizure [Unknown]
  - Fear of disease [Recovered/Resolved]

NARRATIVE: CASE EVENT DATE: 20160601
